FAERS Safety Report 10998302 (Version 1)
Quarter: 2015Q2

REPORT INFORMATION
  Report Type: Spontaneous
  Country: US (occurrence: US)
  Receive Date: 20150408
  Receipt Date: 20150408
  Transmission Date: 20150821
  Serious: No
  Sender: FDA-Public Use
  Company Number: US-SA-2014SA043313

PATIENT
  Age: 36 Year
  Sex: Female
  Weight: 82 kg

DRUGS (3)
  1. FLAXSEED [Concomitant]
     Active Substance: FLAX SEED
     Indication: BLOOD CHOLESTEROL
     Route: 065
     Dates: start: 2013
  2. ALLEGRA [Suspect]
     Active Substance: FEXOFENADINE HYDROCHLORIDE
     Indication: HYPERSENSITIVITY
     Dosage: TAKEN FROM: 3 WEEKS AGO
     Route: 048
     Dates: start: 201403
  3. NATURES OWN GARLIC [Concomitant]
     Indication: BLOOD CHOLESTEROL
     Route: 065
     Dates: start: 2013

REACTIONS (1)
  - Palpitations [Not Recovered/Not Resolved]

NARRATIVE: CASE EVENT DATE: 20140215
